FAERS Safety Report 8485258-4 (Version None)
Quarter: 2012Q2

REPORT INFORMATION
  Report Type: 
  Country: None (occurrence: None)
  Receive Date: 20120627
  Receipt Date: 20120627
  Transmission Date: 20120825
  Serious: Yes (Death, Hospitalization)
  Sender: FDA-Public Use
  Company Number: None

PATIENT
  Sex: Female
  Weight: 50 kg

DRUGS (2)
  1. ADDERALL XR 10 [Concomitant]
  2. PROCHLORPERAZINE [Suspect]
     Dosage: 10MG @ 6? BY MOUTH
     Route: 048

REACTIONS (3)
  - EXTRAPYRAMIDAL DISORDER [None]
  - TARDIVE DYSKINESIA [None]
  - TRISMUS [None]
